FAERS Safety Report 9102029 (Version 1)
Quarter: 2013Q1

REPORT INFORMATION
  Report Type: Spontaneous
  Country: ES (occurrence: JP)
  Receive Date: 20130218
  Receipt Date: 20130218
  Transmission Date: 20140127
  Serious: Yes (Hospitalization)
  Sender: FDA-Public Use
  Company Number: ES-BAYER-2013-017279

PATIENT
  Age: 61 Year
  Sex: Male

DRUGS (4)
  1. ACARBOSE [Suspect]
     Indication: DIABETES MELLITUS
     Dosage: 60 MG, TID
  2. NIFEDIPINE [Suspect]
     Indication: HYPERTENSION
  3. GLIBENCLAMIDE [Suspect]
     Indication: DIABETES MELLITUS
     Dosage: 2.5 MG, QD
  4. TICLOPIDINE [Suspect]
     Indication: CEREBRAL INFARCTION
     Dosage: 100 MG, BID

REACTIONS (1)
  - Agranulocytosis [Recovered/Resolved]
